FAERS Safety Report 4699263-7 (Version None)
Quarter: 2005Q2

REPORT INFORMATION
  Report Type: 
  Country: None (occurrence: None)
  Receive Date: 20050622
  Receipt Date: 20050616
  Transmission Date: 20051028
  Serious: Yes (Other)
  Sender: FDA-Public Use
  Company Number: 2005089305

PATIENT
  Age: 60 Year
  Sex: Male

DRUGS (2)
  1. LIPITOR [Suspect]
     Indication: ILL-DEFINED DISORDER
     Dosage: 10 MG (1 IN 1 D ), ORAL
     Route: 048
     Dates: start: 20030501, end: 20050531
  2. VOGLIBOSE (VOGLIBOSE) [Suspect]
     Indication: ILL-DEFINED DISORDER

REACTIONS (1)
  - NEPHRITIS INTERSTITIAL [None]
